FAERS Safety Report 7779563-4 (Version None)
Quarter: 2011Q3

REPORT INFORMATION
  Report Type: 
  Country: None (occurrence: None)
  Receive Date: 20110927
  Receipt Date: 20110916
  Transmission Date: 20111222
  Serious: Yes (Other)
  Sender: FDA-Public Use
  Company Number: US-CELGENEUS-163-21880-11053865

PATIENT
  Sex: Female

DRUGS (4)
  1. REVLIMID [Suspect]
     Indication: MULTIPLE MYELOMA
     Dosage: 25 MILLIGRAM
     Route: 048
     Dates: start: 20101126, end: 20101217
  2. BIAXIN [Concomitant]
     Route: 065
  3. DEXAMETHASONE [Suspect]
     Route: 065
  4. REVLIMID [Suspect]
     Dosage: 25 MILLIGRAM
     Route: 048
     Dates: start: 20110323, end: 20110513

REACTIONS (3)
  - PSYCHOTIC DISORDER [None]
  - PANCYTOPENIA [None]
  - DRUG INEFFECTIVE [None]
